FAERS Safety Report 5385986-3 (Version None)
Quarter: 2007Q3

REPORT INFORMATION
  Report Type: 
  Country: None (occurrence: None)
  Receive Date: 20070709
  Receipt Date: 20070703
  Transmission Date: 20080115
  Serious: Yes (Hospitalization)
  Sender: FDA-Public Use
  Company Number: 2007SP011827

PATIENT
  Age: 32 Year
  Sex: Male
  Weight: 86 kg

DRUGS (5)
  1. PEG-INTRON [Suspect]
     Indication: HEPATITIS C
     Dosage: 120 MCG;QW;SC
     Route: 058
     Dates: start: 20070223, end: 20070601
  2. PEG-INTRON [Suspect]
     Indication: HEPATITIS C
     Dosage: 120 MCG;QW;SC
     Route: 058
     Dates: start: 20070615
  3. REBETOL [Suspect]
     Indication: HEPATITIS C
     Dosage: 1000 MG; ; PO
     Route: 048
     Dates: start: 20070223, end: 20070606
  4. REBETOL [Suspect]
     Indication: HEPATITIS C
     Dosage: 1000 MG; ; PO
     Route: 048
     Dates: start: 20070615
  5. URSO 250 [Concomitant]

REACTIONS (1)
  - BILE DUCT STONE [None]
